FAERS Safety Report 24800799 (Version 4)
Quarter: 2025Q2

REPORT INFORMATION
  Report Type: Spontaneous
  Country: BE (occurrence: BE)
  Receive Date: 20250102
  Receipt Date: 20250402
  Transmission Date: 20250716
  Serious: Yes (Other)
  Sender: PFIZER
  Company Number: BE-ROCHE-10000157226

PATIENT
  Sex: Female

DRUGS (2)
  1. RITUXIMAB [Suspect]
     Active Substance: RITUXIMAB
     Dates: start: 2024
  2. BENDAMUSTINE [Suspect]
     Active Substance: BENDAMUSTINE
     Dates: start: 2020

REACTIONS (3)
  - Autoimmune haemolytic anaemia [Unknown]
  - Therapeutic product effect decreased [Unknown]
  - Disease recurrence [Unknown]

NARRATIVE: CASE EVENT DATE: 20240101
